FAERS Safety Report 7682443-6 (Version None)
Quarter: 2011Q3

REPORT INFORMATION
  Report Type: 
  Country: None (occurrence: None)
  Receive Date: 20110808
  Receipt Date: 20110722
  Transmission Date: 20111222
  Serious: Yes (Congenital Anomaly)
  Sender: FDA-Public Use
  Company Number: DSA_47246-2011

PATIENT
  Sex: Female

DRUGS (3)
  1. ASPIRIN [Concomitant]
  2. SIMAVASTATIN [Concomitant]
  3. ENALAPRIL MALEATE [Suspect]
     Indication: HYPERTENSION
     Dosage: 5 MG, QD, TRANSPLACENTAL
     Route: 064

REACTIONS (5)
  - SINGLE UMBILICAL ARTERY [None]
  - MATERNAL EXPOSURE DURING PREGNANCY [None]
  - ABORTION INDUCED [None]
  - ANENCEPHALY [None]
  - PREGNANCY [None]
